FAERS Safety Report 12230056 (Version 1)
Quarter: 2016Q1

REPORT INFORMATION
  Report Type: Spontaneous
  Country: US (occurrence: None)
  Receive Date: 20160331
  Receipt Date: 20160331
  Transmission Date: 20160526
  Serious: No
  Sender: FDA-Public Use
  Company Number: None

PATIENT
  Age: 62 Year
  Sex: Female

DRUGS (9)
  1. CAPECITABINE 500 MG TAB TEVA PHARMACEUTICALS [Suspect]
     Active Substance: CAPECITABINE
     Indication: LUNG NEOPLASM MALIGNANT
     Route: 048
     Dates: start: 20160312
  2. GLIMEPERIDE [Concomitant]
     Active Substance: GLIMEPIRIDE
  3. IPRATROPIUM [Concomitant]
     Active Substance: IPRATROPIUM
  4. PROCHLORPERAZINE. [Concomitant]
     Active Substance: PROCHLORPERAZINE
  5. LANTUS [Concomitant]
     Active Substance: INSULIN GLARGINE
  6. MULTAQ [Concomitant]
     Active Substance: DRONEDARONE
  7. HUMALOG [Concomitant]
     Active Substance: INSULIN LISPRO
  8. DEXAMETHASONE. [Concomitant]
     Active Substance: DEXAMETHASONE
  9. ALUBETEROL [Concomitant]

REACTIONS (5)
  - Diarrhoea [None]
  - Hypotension [None]
  - Stomatitis [None]
  - Dehydration [None]
  - Weight decreased [None]

NARRATIVE: CASE EVENT DATE: 201603
